FAERS Safety Report 15484742 (Version 1)
Quarter: 2018Q4

REPORT INFORMATION
  Report Type: Spontaneous
  Country: CN (occurrence: CN)
  Receive Date: 20181010
  Receipt Date: 20181010
  Transmission Date: 20190205
  Serious: Yes (Death)
  Sender: FDA-Public Use
  Company Number: CN-OXFORD PHARMACEUTICALS, LLC-2018OXF00108

PATIENT

DRUGS (2)
  1. GLUCOCORTICOID [Concomitant]
     Active Substance: UNSPECIFIED INGREDIENT
     Route: 048
  2. MYCOPHENOLATE [Suspect]
     Active Substance: MYCOPHENOLIC ACID
     Indication: NEUROMYELITIS OPTICA SPECTRUM DISORDER
     Dosage: 1000 MG, 1X/DAY
     Route: 065

REACTIONS (2)
  - Acute respiratory distress syndrome [Fatal]
  - Haemorrhagic varicella syndrome [Fatal]
